FAERS Safety Report 16088919 (Version 1)
Quarter: 2019Q1

REPORT INFORMATION
  Report Type: Spontaneous
  Country: FR (occurrence: FR)
  Receive Date: 20190319
  Receipt Date: 20190319
  Transmission Date: 20190418
  Serious: Yes (Other)
  Sender: FDA-Public Use
  Company Number: FR-ACS-001351

PATIENT
  Age: 64 Year
  Sex: Male

DRUGS (4)
  1. CEFUROXIME. [Suspect]
     Active Substance: CEFUROXIME
     Dosage: 0.1 ML OF 10 MG/ML
     Route: 031
  2. TETRACAINE. [Concomitant]
     Active Substance: TETRACAINE
     Indication: ANAESTHESIA
     Route: 065
  3. PHENYLEPHRINE [Concomitant]
     Active Substance: PHENYLEPHRINE\PHENYLEPHRINE HYDROCHLORIDE
     Indication: MYDRIASIS
     Route: 065
  4. TROPICAMIDE 1 % [Concomitant]
     Indication: MYDRIASIS
     Route: 065

REACTIONS (4)
  - Retinal oedema [Recovered/Resolved]
  - Retinal detachment [Recovered/Resolved]
  - Retinal toxicity [Recovered/Resolved]
  - Off label use [Unknown]
